FAERS Safety Report 13937291 (Version 1)
Quarter: 2017Q3

REPORT INFORMATION
  Report Type: Spontaneous
  Country: CN (occurrence: CN)
  Receive Date: 20170905
  Receipt Date: 20170905
  Transmission Date: 20171127
  Serious: Yes (Other)
  Sender: FDA-Public Use
  Company Number: CN-PFIZER INC-2017376234

PATIENT
  Age: 65 Year
  Sex: Male
  Weight: 55 kg

DRUGS (2)
  1. SHI HUI DA [Suspect]
     Active Substance: LEVAMLODIPINE BESYLATE
     Indication: HYPERTENSION
     Dosage: 2.5 MG, 1X/DAY
     Route: 048
     Dates: start: 20170710, end: 20170710
  2. AMLODIPINE BESILATE [Suspect]
     Active Substance: AMLODIPINE BESYLATE
     Indication: HYPERTENSION
     Dosage: 5 MG, 1X/DAY
     Route: 048
     Dates: start: 20170710, end: 20170710

REACTIONS (1)
  - Altered state of consciousness [Recovering/Resolving]

NARRATIVE: CASE EVENT DATE: 20170710
